FAERS Safety Report 5255877-7 (Version None)
Quarter: 2007Q1

REPORT INFORMATION
  Report Type: 
  Country: None (occurrence: None)
  Receive Date: 20070301
  Receipt Date: 20070214
  Transmission Date: 20070707
  Serious: Yes (Hospitalization)
  Sender: FDA-Public Use
  Company Number: JPI-P-000673

PATIENT
  Sex: Female

DRUGS (7)
  1. XYREM  (OXYBATE SODIUM) (500 MILLIGRAM/MILLILITERS, SOLUTION) (SODIUN [Suspect]
     Indication: FIBROMYALGIA
     Dosage: 9 GM (4.5 GM, 2 IN1 D), ORAL
     Route: 048
     Dates: start: 20061201, end: 20070117
  2. XYREM  (OXYBATE SODIUM) (500 MILLIGRAM/MILLILITERS, SOLUTION) (SODIUN [Suspect]
     Indication: SOMNOLENCE
     Dosage: 9 GM (4.5 GM, 2 IN1 D), ORAL
     Route: 048
     Dates: start: 20061201, end: 20070117
  3. SYNTHROID [Concomitant]
  4. TOPAMAX [Concomitant]
  5. MOBIC [Concomitant]
  6. AUGMENTIN (AUGMENTIN /00756801/) [Concomitant]
  7. ZOMIG [Concomitant]

REACTIONS (2)
  - BIPOLAR DISORDER [None]
  - MANIA [None]
